FAERS Safety Report 5115820-8 (Version None)
Quarter: 2006Q3

REPORT INFORMATION
  Report Type: 
  Country: None (occurrence: None)
  Receive Date: 20060927
  Receipt Date: 20060920
  Transmission Date: 20061208
  Serious: Yes (Other)
  Sender: FDA-Public Use
  Company Number: 2006UW18662

PATIENT
  Age: 23151 Day
  Sex: Female
  Weight: 95.3 kg

DRUGS (6)
  1. TAMOXIFEN CITRATE [Suspect]
     Indication: BREAST CANCER
     Dates: start: 20010808, end: 20060101
  2. SYNTHROID [Concomitant]
     Indication: HYPOTHYROIDISM
     Route: 048
  3. ASPIRIN [Concomitant]
  4. DIOVAN [Concomitant]
     Indication: HYPERTENSION
     Route: 048
  5. PAXIL [Concomitant]
     Indication: ANXIETY
     Route: 048
  6. PAXIL [Concomitant]
     Indication: DEPRESSION
     Route: 048

REACTIONS (3)
  - HOT FLUSH [None]
  - NEUROPATHY PERIPHERAL [None]
  - WEIGHT INCREASED [None]
